FAERS Safety Report 7150970-6 (Version None)
Quarter: 2010Q4

REPORT INFORMATION
  Report Type: 
  Country: None (occurrence: None)
  Receive Date: 20101210
  Receipt Date: 20101206
  Transmission Date: 20110411
  Serious: Yes (Death, Hospitalization)
  Sender: FDA-Public Use
  Company Number: A0897987A

PATIENT
  Age: 64 Year
  Sex: Male

DRUGS (4)
  1. LOVAZA [Suspect]
     Indication: BLOOD TRIGLYCERIDES INCREASED
     Dosage: 1G TWICE PER DAY
     Route: 048
     Dates: start: 20090101, end: 20101124
  2. NEXIUM [Concomitant]
  3. ASPIRIN [Concomitant]
  4. MULTIPLE MEDICATIONS [Concomitant]

REACTIONS (4)
  - DEATH [None]
  - DYSPHAGIA [None]
  - DYSPNOEA [None]
  - EATING DISORDER [None]
